FAERS Safety Report 10154345 (Version 1)
Quarter: 2014Q2

REPORT INFORMATION
  Report Type: Spontaneous
  Country: US (occurrence: US)
  Receive Date: 20140506
  Receipt Date: 20140506
  Transmission Date: 20141212
  Serious: No
  Sender: FDA-Public Use
  Company Number: US-PFIZER INC-2014122404

PATIENT
  Sex: Female

DRUGS (3)
  1. CHANTIX [Suspect]
     Indication: SMOKING CESSATION THERAPY
     Dosage: UNK
     Route: 048
     Dates: start: 2014
  2. VALIUM [Concomitant]
     Indication: AGITATION
     Dosage: UNK
  3. VALIUM [Concomitant]
     Indication: DEPRESSION

REACTIONS (4)
  - Parosmia [Unknown]
  - Migraine [Unknown]
  - Nausea [Unknown]
  - Therapeutic response changed [Unknown]
